FAERS Safety Report 4409380-4 (Version None)
Quarter: 2004Q3

REPORT INFORMATION
  Report Type: 
  Country: None (occurrence: None)
  Receive Date: 20040727
  Receipt Date: 20040727
  Transmission Date: 20050211
  Serious: Yes (Life-Threatening)
  Sender: FDA-Public Use
  Company Number: None

PATIENT
  Age: 55 Year
  Sex: Male
  Weight: 106 kg

DRUGS (13)
  1. RIBAVIRIN [Suspect]
     Indication: HEPATITIS C
     Dates: start: 20030701, end: 20031001
  2. INTERFERON PEGYLATED [Concomitant]
  3. AUGMENTIN '250' [Concomitant]
  4. PROZAC [Concomitant]
  5. PRAVACHOL [Concomitant]
  6. SYNTHROID [Concomitant]
  7. DIOVAN [Concomitant]
  8. SOMA [Concomitant]
  9. PREVACID [Concomitant]
  10. GLUCOPHAGE [Concomitant]
  11. ASPIRIN [Concomitant]
  12. TESTOSTERONE [Concomitant]
  13. XANAX [Concomitant]

REACTIONS (2)
  - ANAEMIA [None]
  - RASH PRURITIC [None]
